FAERS Safety Report 12767248 (Version 1)
Quarter: 2016Q3

REPORT INFORMATION
  Report Type: Report from Study
  Country: DE (occurrence: DE)
  Receive Date: 20160921
  Receipt Date: 20160921
  Transmission Date: 20161109
  Serious: Yes (Hospitalization, Other)
  Sender: FDA-Public Use
  Company Number: DE-JNJFOC-20160306676

PATIENT
  Age: 21 Year
  Sex: Male
  Weight: 73 kg

DRUGS (10)
  1. PREDNISOLONE. [Concomitant]
     Active Substance: PREDNISOLONE
     Indication: COLITIS ULCERATIVE
     Route: 065
     Dates: start: 20160222
  2. SALOFALK GR [Concomitant]
     Indication: COLITIS ULCERATIVE
     Route: 065
     Dates: start: 2014
  3. LECITHIN [Concomitant]
     Active Substance: LECITHIN
     Indication: COLITIS ULCERATIVE
     Route: 065
     Dates: start: 2010
  4. ESOMEPRAZOLE [Concomitant]
     Active Substance: ESOMEPRAZOLE
     Route: 065
  5. FRAGMIN [Concomitant]
     Active Substance: DALTEPARIN SODIUM
     Route: 065
  6. MESALAZIN [Concomitant]
     Active Substance: MESALAMINE
     Route: 065
  7. VITAMIN D3 [Concomitant]
     Active Substance: CHOLECALCIFEROL
     Route: 065
  8. SIMPONI [Suspect]
     Active Substance: GOLIMUMAB
     Indication: COLITIS ULCERATIVE
     Route: 058
     Dates: start: 20151127
  9. VIGANTOLETTEN [Concomitant]
     Active Substance: CHOLECALCIFEROL
     Route: 065
  10. DECORTIN [Concomitant]
     Active Substance: PREDNISONE
     Indication: COLITIS ULCERATIVE
     Route: 065
     Dates: start: 20160222

REACTIONS (4)
  - Bite [Unknown]
  - Generalised tonic-clonic seizure [Recovered/Resolved]
  - Febrile infection [Unknown]
  - Tachycardia [Unknown]

NARRATIVE: CASE EVENT DATE: 2016
